FAERS Safety Report 21562268 (Version 1)
Quarter: 2022Q4

REPORT INFORMATION
  Report Type: Spontaneous
  Country: US (occurrence: None)
  Receive Date: 20221104
  Receipt Date: 20221104
  Transmission Date: 20230113
  Serious: Yes (Hospitalization)
  Sender: FDA-Public Use
  Company Number: None

PATIENT
  Age: 87 Year
  Sex: Male

DRUGS (1)
  1. ABIRATERONE [Suspect]
     Active Substance: ABIRATERONE
     Dosage: 1000MG DAILY ORAL
     Route: 048
     Dates: start: 202201

REACTIONS (5)
  - Syncope [None]
  - Blood pressure orthostatic decreased [None]
  - Skin laceration [None]
  - Skin haemorrhage [None]
  - Contusion [None]

NARRATIVE: CASE EVENT DATE: 20221104
